FAERS Safety Report 25925998 (Version 1)
Quarter: 2025Q4

REPORT INFORMATION
  Report Type: Spontaneous
  Country: US (occurrence: None)
  Receive Date: 20251014
  Receipt Date: 20251014
  Transmission Date: 20260117
  Serious: Yes (Hospitalization)
  Sender: FDA-CTU
  Company Number: None

PATIENT
  Age: 66 Year
  Sex: Male

DRUGS (2)
  1. SUNITINIB [Suspect]
     Active Substance: SUNITINIB
     Indication: Gastrointestinal stromal tumour
     Dosage: 37.5 MG DAILY
  2. SUNITINIB [Suspect]
     Active Substance: SUNITINIB
     Indication: Gastric neoplasm

REACTIONS (5)
  - Tumour lysis syndrome [None]
  - Asthenia [None]
  - Nausea [None]
  - Dyspepsia [None]
  - Therapy interrupted [None]
